FAERS Safety Report 25557011 (Version 1)
Quarter: 2025Q3

REPORT INFORMATION
  Report Type: Spontaneous
  Country: CN (occurrence: CN)
  Receive Date: 20250715
  Receipt Date: 20250715
  Transmission Date: 20251020
  Serious: Yes (Other)
  Sender: OTSUKA
  Company Number: CN-MMM-Otsuka-SDTPYA5G

PATIENT
  Age: 17 Year
  Sex: Male

DRUGS (7)
  1. ARIPIPRAZOLE [Suspect]
     Active Substance: ARIPIPRAZOLE
     Indication: Psychiatric symptom
     Dosage: 15 MG, QD (EVERY NIGHT)
     Route: 048
     Dates: start: 20250512, end: 20250513
  2. ARIPIPRAZOLE [Suspect]
     Active Substance: ARIPIPRAZOLE
     Dosage: 5 MG, QD (EVERY NIGHT)
     Route: 048
     Dates: start: 20250506, end: 20250507
  3. ARIPIPRAZOLE [Suspect]
     Active Substance: ARIPIPRAZOLE
     Dosage: 10 MG, QD (EVERY NIGHT)
     Route: 048
     Dates: start: 20250508, end: 20250511
  4. ARIPIPRAZOLE [Suspect]
     Active Substance: ARIPIPRAZOLE
     Dosage: 10 MG, QD (EVERY NIGHT)
     Route: 065
  5. QUETIAPINE FUMARATE [Suspect]
     Active Substance: QUETIAPINE FUMARATE
     Indication: Psychiatric symptom
     Dosage: 0.1 G, QD (EVERY NIGHT)
     Route: 048
     Dates: start: 20250512, end: 20250513
  6. QUETIAPINE FUMARATE [Suspect]
     Active Substance: QUETIAPINE FUMARATE
     Dosage: 0.05 G, QD (EVERY NIGHT)
     Route: 048
     Dates: start: 20250508, end: 20250511
  7. QUETIAPINE FUMARATE [Suspect]
     Active Substance: QUETIAPINE FUMARATE
     Dosage: 0.05 G, QD (EVERY NIGHT)
     Route: 065

REACTIONS (1)
  - Hepatic function abnormal [Recovering/Resolving]

NARRATIVE: CASE EVENT DATE: 20250513
